FAERS Safety Report 6048502-9 (Version None)
Quarter: 2009Q1

REPORT INFORMATION
  Report Type: 
  Country: None (occurrence: None)
  Receive Date: 20090123
  Receipt Date: 20090120
  Transmission Date: 20090719
  Serious: Yes (Life-Threatening)
  Sender: FDA-Public Use
  Company Number: B0554561A

PATIENT
  Age: 62 Year
  Sex: Female

DRUGS (6)
  1. ZOPHREN [Suspect]
     Indication: PREMEDICATION
     Dosage: 8MG PER DAY
     Route: 042
     Dates: start: 20090107, end: 20090107
  2. RANIPLEX [Suspect]
     Indication: PREMEDICATION
     Dosage: 50MG PER DAY
     Route: 042
     Dates: start: 20090107, end: 20090107
  3. PACLITAXEL [Suspect]
     Dosage: 250MG PER DAY
     Route: 042
     Dates: start: 20090107, end: 20090107
  4. SOLU-MEDROL [Suspect]
     Indication: PREMEDICATION
     Dosage: 120MG PER DAY
     Route: 042
     Dates: start: 20090107, end: 20090107
  5. POLARAMINE [Suspect]
     Indication: PREMEDICATION
     Dosage: 5MG PER DAY
     Route: 042
     Dates: start: 20090107, end: 20090107
  6. PRIMPERAN TAB [Suspect]
     Indication: PREMEDICATION
     Route: 042
     Dates: start: 20090107, end: 20090107

REACTIONS (5)
  - ANAPHYLACTIC SHOCK [None]
  - BLOOD PRESSURE DECREASED [None]
  - CYANOSIS [None]
  - LOSS OF CONSCIOUSNESS [None]
  - MALAISE [None]
